FAERS Safety Report 8459960-4 (Version None)
Quarter: 2012Q2

REPORT INFORMATION
  Report Type: 
  Country: None (occurrence: None)
  Receive Date: 20120622
  Receipt Date: 20120619
  Transmission Date: 20120825
  Serious: Yes (Death, Hospitalization, Other)
  Sender: FDA-Public Use
  Company Number: PHHY2010FR14580

PATIENT
  Sex: Male
  Weight: 81 kg

DRUGS (1)
  1. TASIGNA [Suspect]
     Dosage: 800 MG, QD
     Route: 048
     Dates: start: 20060620, end: 20080701

REACTIONS (10)
  - ARTERITIS [None]
  - BLOOD PHOSPHORUS DECREASED [None]
  - BRAIN NEOPLASM [None]
  - BLOOD GLUCOSE INCREASED [None]
  - BLOOD PRESSURE ORTHOSTATIC ABNORMAL [None]
  - HYPERCHOLESTEROLAEMIA [None]
  - PAIN IN EXTREMITY [None]
  - INTERMITTENT CLAUDICATION [None]
  - VENOUS STENOSIS [None]
  - ANGINA UNSTABLE [None]
